FAERS Safety Report 4627586-6 (Version None)
Quarter: 2005Q2

REPORT INFORMATION
  Report Type: 
  Country: None (occurrence: None)
  Receive Date: 20050405
  Receipt Date: 20050325
  Transmission Date: 20051028
  Serious: Yes (Hospitalization)
  Sender: FDA-Public Use
  Company Number: US014974

PATIENT
  Age: 15 Year
  Sex: Male

DRUGS (1)
  1. GABITRIL [Suspect]
     Dosage: 36 MG ONCE ORAL
     Route: 048

REACTIONS (6)
  - DELIRIUM [None]
  - DEPRESSED LEVEL OF CONSCIOUSNESS [None]
  - MYDRIASIS [None]
  - OVERDOSE [None]
  - SELF-MEDICATION [None]
  - TREMOR [None]
